FAERS Safety Report 25447056 (Version 2)
Quarter: 2025Q3

REPORT INFORMATION
  Report Type: Report from Study
  Country: US (occurrence: US)
  Receive Date: 20250617
  Receipt Date: 20250714
  Transmission Date: 20251021
  Serious: No
  Sender: MALLINCKRODT
  Company Number: US-MALLINCKRODT-MNK202503162

PATIENT
  Sex: Male

DRUGS (2)
  1. CORTICOTROPIN [Suspect]
     Active Substance: CORTICOTROPIN
     Indication: Optic neuritis
  2. RITUXAN [Concomitant]
     Active Substance: RITUXIMAB

REACTIONS (4)
  - Feeling abnormal [Recovering/Resolving]
  - Hypertension [Recovering/Resolving]
  - Swelling face [Not Recovered/Not Resolved]
  - Weight increased [Unknown]
